FAERS Safety Report 9258568 (Version 1)
Quarter: 2013Q2

REPORT INFORMATION
  Report Type: Spontaneous
  Country: FR (occurrence: FR)
  Receive Date: 20130426
  Receipt Date: 20130426
  Transmission Date: 20140414
  Serious: Yes (Hospitalization)
  Sender: FDA-Public Use
  Company Number: FR-PFIZER INC-2013126609

PATIENT
  Age: 66 Year
  Sex: Female

DRUGS (17)
  1. ALDACTONE [Suspect]
     Dosage: 75 MG, 1X/DAY
     Route: 048
     Dates: end: 20130306
  2. PRADAXA [Suspect]
     Dosage: 150 MG, 2X/DAY
     Route: 048
     Dates: start: 201301, end: 20130306
  3. LASILIX [Suspect]
     Dosage: 375 MG, 1X/DAY
     Route: 048
     Dates: end: 20130306
  4. CARDENSIEL [Concomitant]
     Dosage: UNK
  5. EFFEXOR - SLOW RELEASE [Concomitant]
  6. DAFALGAN [Concomitant]
     Dosage: 500 MG, 3X/DAY
  7. AMLOR [Concomitant]
     Dosage: UNK
  8. MOXONIDINE [Concomitant]
     Dosage: UNK
  9. XANAX [Concomitant]
     Dosage: UNK
  10. TARDYFERON [Concomitant]
     Dosage: UNK
  11. LANTUS [Concomitant]
  12. HUMALOG [Concomitant]
  13. TAREG [Concomitant]
  14. FUCIDINE [Concomitant]
     Dosage: UNK
     Dates: end: 20130319
  15. TAVANIC [Concomitant]
     Dosage: UNK
     Dates: end: 20130319
  16. CUBICIN [Concomitant]
     Dosage: UNK
     Dates: end: 20130319
  17. INVANZ [Concomitant]
     Dosage: UNK
     Dates: end: 20130319

REACTIONS (1)
  - Thrombocytopenic purpura [Recovered/Resolved]
